FAERS Safety Report 5525773-6 (Version None)
Quarter: 2007Q4

REPORT INFORMATION
  Report Type: 
  Country: None (occurrence: None)
  Receive Date: 20071126
  Receipt Date: 20071114
  Transmission Date: 20080405
  Serious: Yes (Hospitalization)
  Sender: FDA-Public Use
  Company Number: FR-ROCHE-532154

PATIENT
  Age: 88 Year
  Sex: Female

DRUGS (11)
  1. VALIUM [Suspect]
     Indication: DRUG USE FOR UNKNOWN INDICATION
     Dosage: ONE DOSE DAILY
     Route: 048
     Dates: end: 20070914
  2. EFFEXOR [Suspect]
     Indication: DRUG USE FOR UNKNOWN INDICATION
     Route: 048
     Dates: end: 20070914
  3. LOXEN LP [Suspect]
     Indication: DRUG USE FOR UNKNOWN INDICATION
     Route: 048
     Dates: end: 20070914
  4. EUPRESSYL [Suspect]
     Indication: DRUG USE FOR UNKNOWN INDICATION
     Route: 048
     Dates: end: 20070914
  5. DETENSIEL [Suspect]
     Indication: DRUG USE FOR UNKNOWN INDICATION
     Dosage: 0.5 DOSE DAILY
     Route: 048
     Dates: end: 20070914
  6. VASTAREL [Concomitant]
     Route: 048
     Dates: end: 20070914
  7. DIFFU K [Concomitant]
     Route: 048
     Dates: end: 20070914
  8. FOSAMAX [Concomitant]
     Route: 048
  9. KARDEGIC [Concomitant]
     Route: 048
  10. STABLON [Concomitant]
  11. DIGITALINE NATIVELLE [Concomitant]
     Dosage: 0.5 DOSE PER DAY
     Route: 048
     Dates: end: 20070914

REACTIONS (3)
  - ECCHYMOSIS [None]
  - FALL [None]
  - WRIST FRACTURE [None]
